FAERS Safety Report 14701611 (Version 5)
Quarter: 2018Q2

REPORT INFORMATION
  Report Type: Report from Study
  Country: SE (occurrence: SE)
  Receive Date: 20180331
  Receipt Date: 20180621
  Transmission Date: 20180711
  Serious: Yes (Other)
  Sender: FDA-Public Use
  Company Number: SE-AUROBINDO-AUR-APL-2018-017307

PATIENT
  Age: 54 Year
  Sex: Female

DRUGS (95)
  1. METFORMIN [Suspect]
     Active Substance: METFORMIN HYDROCHLORIDE
     Dosage: UNK ()
     Route: 065
  2. METFORMIN [Suspect]
     Active Substance: METFORMIN HYDROCHLORIDE
     Dosage: UNK ()
     Route: 065
  3. AMOXICILLIN+CLAVULANIC ACID [Suspect]
     Active Substance: AMOXICILLIN\CLAVULANIC ACID
     Indication: PRODUCT USED FOR UNKNOWN INDICATION
     Dosage: ()
     Route: 065
  4. ENALAPRIL [Suspect]
     Active Substance: ENALAPRIL
     Indication: PRODUCT USED FOR UNKNOWN INDICATION
     Dosage: ()
  5. ENALAPRIL [Suspect]
     Active Substance: ENALAPRIL
     Dosage: UNK ()
     Route: 065
  6. ENALAPRIL [Suspect]
     Active Substance: ENALAPRIL
     Dosage: UNK ()
  7. CIPROFLOXACIN. [Suspect]
     Active Substance: CIPROFLOXACIN
     Indication: PRODUCT USED FOR UNKNOWN INDICATION
     Dosage: ()
  8. CIPROFLOXACIN. [Suspect]
     Active Substance: CIPROFLOXACIN
     Dosage: UNK ()
     Route: 065
  9. CIPROFLOXACIN. [Suspect]
     Active Substance: CIPROFLOXACIN
     Dosage: UNK ()
     Route: 065
  10. ALLOPURINOL. [Suspect]
     Active Substance: ALLOPURINOL
     Dosage: ()
  11. TELAVANCIN [Suspect]
     Active Substance: TELAVANCIN
     Dosage: ()
     Route: 042
  12. TELAVANCIN [Suspect]
     Active Substance: TELAVANCIN
     Dosage: UNK ()
     Route: 042
  13. METFORMIN [Suspect]
     Active Substance: METFORMIN HYDROCHLORIDE
     Dosage: ()
  14. CEFEPIME [Suspect]
     Active Substance: CEFEPIME HYDROCHLORIDE
     Dosage: UNK ()
     Route: 065
  15. CEFEPIME [Suspect]
     Active Substance: CEFEPIME HYDROCHLORIDE
     Dosage: UNK ()
     Route: 065
  16. ENALAPRIL [Suspect]
     Active Substance: ENALAPRIL
     Dosage: UNK ()
  17. ENALAPRIL [Suspect]
     Active Substance: ENALAPRIL
     Dosage: UNK ()
     Route: 065
  18. ENALAPRIL [Suspect]
     Active Substance: ENALAPRIL
     Dosage: UNK ()
     Route: 065
  19. ENALAPRIL [Suspect]
     Active Substance: ENALAPRIL
     Dosage: UNK ()
  20. CIPROFLOXACIN. [Suspect]
     Active Substance: CIPROFLOXACIN
     Dosage: UNK ()
     Route: 065
  21. CEFTRIAXONE. [Suspect]
     Active Substance: CEFTRIAXONE
     Dosage: UNK ()
     Route: 051
  22. ALLOPURINOL. [Suspect]
     Active Substance: ALLOPURINOL
     Dosage: UNK ()
     Route: 065
  23. TELAVANCIN [Suspect]
     Active Substance: TELAVANCIN
     Dosage: UNK ()
     Route: 042
  24. TELAVANCIN [Suspect]
     Active Substance: TELAVANCIN
     Dosage: UNK ()
     Route: 042
  25. CEFEPIME [Suspect]
     Active Substance: CEFEPIME HYDROCHLORIDE
     Dosage: UNK ()
     Route: 065
  26. CEFEPIME [Suspect]
     Active Substance: CEFEPIME HYDROCHLORIDE
     Dosage: UNK ()
     Route: 065
  27. ENALAPRIL [Suspect]
     Active Substance: ENALAPRIL
     Dosage: ()
     Route: 065
  28. CIPROFLOXACIN. [Suspect]
     Active Substance: CIPROFLOXACIN
     Dosage: UNK ()
     Route: 065
  29. CIPROFLOXACIN. [Suspect]
     Active Substance: CIPROFLOXACIN
     Dosage: UNK ()
     Route: 065
  30. CIPROFLOXACIN. [Suspect]
     Active Substance: CIPROFLOXACIN
     Dosage: UNK ()
     Route: 065
  31. CEFTRIAXONE. [Suspect]
     Active Substance: CEFTRIAXONE
     Dosage: UNK ()
     Route: 051
  32. ALLOPURINOL. [Suspect]
     Active Substance: ALLOPURINOL
     Dosage: UNK ()
     Route: 065
  33. ALLOPURINOL. [Suspect]
     Active Substance: ALLOPURINOL
     Dosage: UNK ()
     Route: 065
  34. TELAVANCIN [Suspect]
     Active Substance: TELAVANCIN
     Dosage: UNK ()
     Route: 042
  35. TELAVANCIN [Suspect]
     Active Substance: TELAVANCIN
     Dosage: UNK ()
     Route: 042
  36. TELAVANCIN [Suspect]
     Active Substance: TELAVANCIN
     Dosage: UNK ()
     Route: 042
  37. METFORMIN [Suspect]
     Active Substance: METFORMIN HYDROCHLORIDE
     Dosage: UNK ()
     Route: 065
  38. AMOXICILLIN+CLAVULANIC ACID [Suspect]
     Active Substance: AMOXICILLIN\CLAVULANIC ACID
     Dosage: ()
     Route: 065
  39. CEFEPIME [Suspect]
     Active Substance: CEFEPIME HYDROCHLORIDE
     Dosage: ()
     Route: 065
  40. CEFEPIME [Suspect]
     Active Substance: CEFEPIME HYDROCHLORIDE
     Dosage: ()
     Route: 065
  41. ENALAPRIL [Suspect]
     Active Substance: ENALAPRIL
     Dosage: UNK ()
     Route: 065
  42. ENALAPRIL [Suspect]
     Active Substance: ENALAPRIL
     Dosage: UNK ()
     Route: 065
  43. CEFTRIAXONE. [Suspect]
     Active Substance: CEFTRIAXONE
     Dosage: UNK ()
     Route: 051
  44. CEFTRIAXONE. [Suspect]
     Active Substance: CEFTRIAXONE
     Dosage: ()
     Route: 042
  45. CEFTRIAXONE. [Suspect]
     Active Substance: CEFTRIAXONE
     Dosage: UNK ()
     Route: 051
  46. CEFTRIAXONE. [Suspect]
     Active Substance: CEFTRIAXONE
     Dosage: UNK ()
     Route: 051
  47. ALLOPURINOL. [Suspect]
     Active Substance: ALLOPURINOL
     Dosage: UNK ()
     Route: 065
  48. TELAVANCIN [Suspect]
     Active Substance: TELAVANCIN
     Indication: OSTEOMYELITIS
     Dosage: UNK ()
     Route: 042
  49. TELAVANCIN [Suspect]
     Active Substance: TELAVANCIN
     Dosage: UNK ()
     Route: 042
  50. METFORMIN [Suspect]
     Active Substance: METFORMIN HYDROCHLORIDE
     Indication: PRODUCT USED FOR UNKNOWN INDICATION
     Dosage: ()
     Route: 065
  51. CEFEPIME [Suspect]
     Active Substance: CEFEPIME HYDROCHLORIDE
     Dosage: UNK ()
     Route: 065
  52. CEFEPIME [Suspect]
     Active Substance: CEFEPIME HYDROCHLORIDE
     Dosage: ()
  53. ENALAPRIL [Suspect]
     Active Substance: ENALAPRIL
     Dosage: UNK ()
     Route: 065
  54. CIPROFLOXACIN. [Suspect]
     Active Substance: CIPROFLOXACIN
     Dosage: UNK ()
     Route: 065
  55. CIPROFLOXACIN. [Suspect]
     Active Substance: CIPROFLOXACIN
     Dosage: ()
     Route: 065
  56. CIPROFLOXACIN. [Suspect]
     Active Substance: CIPROFLOXACIN
     Dosage: UNK ()
     Route: 065
  57. CIPROFLOXACIN. [Suspect]
     Active Substance: CIPROFLOXACIN
     Dosage: ()
  58. CIPROFLOXACIN. [Suspect]
     Active Substance: CIPROFLOXACIN
     Dosage: UNK ()
     Route: 065
  59. CIPROFLOXACIN. [Suspect]
     Active Substance: CIPROFLOXACIN
     Dosage: UNK ()
     Route: 065
  60. CEFTRIAXONE. [Suspect]
     Active Substance: CEFTRIAXONE
     Dosage: UNK ()
     Route: 051
  61. ALLOPURINOL. [Suspect]
     Active Substance: ALLOPURINOL
     Indication: PRODUCT USED FOR UNKNOWN INDICATION
     Dosage: ()
  62. ALLOPURINOL. [Suspect]
     Active Substance: ALLOPURINOL
     Dosage: UNK ()
     Route: 065
  63. ALLOPURINOL. [Suspect]
     Active Substance: ALLOPURINOL
     Dosage: UNK ()
     Route: 065
  64. AMOXICILLIN+CLAVULANIC ACID [Suspect]
     Active Substance: AMOXICILLIN\CLAVULANIC ACID
     Dosage: ()
     Route: 065
  65. CEFEPIME [Suspect]
     Active Substance: CEFEPIME HYDROCHLORIDE
     Indication: PRODUCT USED FOR UNKNOWN INDICATION
     Dosage: ()
  66. CEFEPIME [Suspect]
     Active Substance: CEFEPIME HYDROCHLORIDE
     Dosage: UNK ()
     Route: 065
  67. ENALAPRIL [Suspect]
     Active Substance: ENALAPRIL
     Dosage: UNK ()
  68. ENALAPRIL [Suspect]
     Active Substance: ENALAPRIL
     Dosage: UNK ()
     Route: 065
  69. CIPROFLOXACIN. [Suspect]
     Active Substance: CIPROFLOXACIN
     Dosage: UNK ()
     Route: 065
  70. CEFTRIAXONE. [Suspect]
     Active Substance: CEFTRIAXONE
     Indication: DIABETIC FOOT
     Dosage: ()
     Route: 042
  71. CEFTRIAXONE. [Suspect]
     Active Substance: CEFTRIAXONE
     Dosage: UNK ()
     Route: 051
  72. ALLOPURINOL. [Suspect]
     Active Substance: ALLOPURINOL
     Dosage: UNK ()
     Route: 065
  73. ALLOPURINOL. [Suspect]
     Active Substance: ALLOPURINOL
     Dosage: UNK ()
     Route: 065
  74. TELAVANCIN [Suspect]
     Active Substance: TELAVANCIN
     Dosage: ()
     Route: 042
  75. METFORMIN [Suspect]
     Active Substance: METFORMIN HYDROCHLORIDE
     Dosage: UNK ()
     Route: 065
  76. CEFEPIME [Suspect]
     Active Substance: CEFEPIME HYDROCHLORIDE
     Dosage: UNK ()
     Route: 065
  77. CEFEPIME [Suspect]
     Active Substance: CEFEPIME HYDROCHLORIDE
     Dosage: UNK ()
     Route: 065
  78. ENALAPRIL [Suspect]
     Active Substance: ENALAPRIL
     Dosage: UNK ()
     Route: 065
  79. ENALAPRIL [Suspect]
     Active Substance: ENALAPRIL
     Dosage: UNK ()
     Route: 065
  80. CIPROFLOXACIN. [Suspect]
     Active Substance: CIPROFLOXACIN
     Dosage: ()
     Route: 065
  81. CEFTRIAXONE. [Suspect]
     Active Substance: CEFTRIAXONE
     Dosage: UNK ()
     Route: 051
  82. ALLOPURINOL. [Suspect]
     Active Substance: ALLOPURINOL
     Dosage: UNK ()
     Route: 065
  83. ALLOPURINOL. [Suspect]
     Active Substance: ALLOPURINOL
     Dosage: UNK ()
     Route: 065
  84. TELAVANCIN [Suspect]
     Active Substance: TELAVANCIN
     Dosage: UNK ()
     Route: 042
  85. METFORMIN [Suspect]
     Active Substance: METFORMIN HYDROCHLORIDE
     Dosage: UNK ()
     Route: 065
  86. METFORMIN [Suspect]
     Active Substance: METFORMIN HYDROCHLORIDE
     Dosage: UNK ()
     Route: 065
  87. CEFEPIME [Suspect]
     Active Substance: CEFEPIME HYDROCHLORIDE
     Dosage: UNK ()
     Route: 065
  88. CEFEPIME [Suspect]
     Active Substance: CEFEPIME HYDROCHLORIDE
     Dosage: UNK ()
     Route: 065
  89. ENALAPRIL [Suspect]
     Active Substance: ENALAPRIL
     Dosage: ()
     Route: 065
  90. ENALAPRIL [Suspect]
     Active Substance: ENALAPRIL
     Dosage: UNK ()
  91. ENALAPRIL [Suspect]
     Active Substance: ENALAPRIL
     Dosage: ()
  92. CEFTRIAXONE. [Suspect]
     Active Substance: CEFTRIAXONE
     Dosage: UNK ()
     Route: 051
  93. ALLOPURINOL. [Suspect]
     Active Substance: ALLOPURINOL
     Dosage: UNK ()
     Route: 065
  94. TELAVANCIN [Suspect]
     Active Substance: TELAVANCIN
     Dosage: UNK ()
     Route: 042
  95. TELAVANCIN [Suspect]
     Active Substance: TELAVANCIN
     Dosage: UNK ()
     Route: 042

REACTIONS (11)
  - Osteomyelitis [Unknown]
  - Pneumonia [Unknown]
  - Tubulointerstitial nephritis [Unknown]
  - Sepsis [Unknown]
  - Drug interaction [Unknown]
  - Diarrhoea [Recovered/Resolved]
  - Hypertensive heart disease [Unknown]
  - Pancytopenia [Recovered/Resolved]
  - Klebsiella infection [Unknown]
  - Acute kidney injury [Recovered/Resolved]
  - Cellulitis [Unknown]

NARRATIVE: CASE EVENT DATE: 201102
